FAERS Safety Report 15358579 (Version 2)
Quarter: 2018Q3

REPORT INFORMATION
  Report Type: Report from Study
  Country: US (occurrence: US)
  Receive Date: 20180906
  Receipt Date: 20180921
  Transmission Date: 20181010
  Serious: Yes (Hospitalization, Other)
  Sender: FDA-Public Use
  Company Number: PHEH2018US037258

PATIENT
  Age: 63 Year
  Sex: Female

DRUGS (2)
  1. GILENYA [Suspect]
     Active Substance: FINGOLIMOD HYDROCHLORIDE
     Indication: MULTIPLE SCLEROSIS
     Dosage: 0.5 MG, UNK
     Route: 065
  2. GILENYA [Suspect]
     Active Substance: FINGOLIMOD HYDROCHLORIDE
     Dosage: UNK
     Route: 065
     Dates: start: 20180815

REACTIONS (12)
  - Temperature intolerance [Unknown]
  - Gastrointestinal disorder [Unknown]
  - Visual impairment [Not Recovered/Not Resolved]
  - Depression [Unknown]
  - Hypoaesthesia [Unknown]
  - Hallucination [Unknown]
  - Bladder dysfunction [Unknown]
  - Incoherent [Recovering/Resolving]
  - Paraesthesia [Unknown]
  - Dysarthria [Unknown]
  - Cognitive disorder [Unknown]
  - Encephalopathy [Unknown]

NARRATIVE: CASE EVENT DATE: 20170806
